FAERS Safety Report 4692973-7 (Version None)
Quarter: 2005Q2

REPORT INFORMATION
  Report Type: 
  Country: None (occurrence: None)
  Receive Date: 20050617
  Receipt Date: 20050608
  Transmission Date: 20051028
  Serious: Yes (Hospitalization)
  Sender: FDA-Public Use
  Company Number: JP-JNJFOC-20040204248

PATIENT
  Sex: Male
  Weight: 54 kg

DRUGS (28)
  1. REMICADE [Suspect]
     Route: 041
     Dates: start: 20031112
  2. REMICADE [Suspect]
     Route: 041
     Dates: start: 20031112
  3. REMICADE [Suspect]
     Route: 041
     Dates: start: 20031112
  4. REMICADE [Suspect]
     Route: 041
     Dates: start: 20031112
  5. REMICADE [Suspect]
     Route: 041
     Dates: start: 20031112
  6. REMICADE [Suspect]
     Route: 041
     Dates: start: 20031112
  7. REMICADE [Suspect]
     Indication: RHEUMATOID ARTHRITIS
     Route: 041
     Dates: start: 20031112
  8. RHEUMATREX [Concomitant]
     Route: 049
  9. RHEUMATREX [Concomitant]
     Route: 049
  10. RHEUMATREX [Concomitant]
     Route: 049
  11. RHEUMATREX [Concomitant]
     Route: 049
  12. OMEPRAL [Concomitant]
     Route: 049
  13. SELBEX [Concomitant]
     Route: 049
  14. FOLIC ACID [Concomitant]
  15. PRIMAXIN [Concomitant]
     Route: 042
  16. PRIMAXIN [Concomitant]
     Route: 042
  17. MEDROL [Concomitant]
     Route: 049
  18. PREDNISOLONE [Concomitant]
     Route: 049
  19. PREDNISOLONE [Concomitant]
     Route: 049
  20. PREDNISOLONE [Concomitant]
     Route: 049
  21. PREDNISOLONE [Concomitant]
     Route: 049
  22. PREDNISOLONE [Concomitant]
     Route: 049
  23. PREDNISOLONE [Concomitant]
     Route: 049
  24. PREDNISOLONE [Concomitant]
     Route: 049
  25. PREDNISOLONE [Concomitant]
     Route: 049
  26. PREDNISOLONE [Concomitant]
     Route: 049
  27. PREDNISOLONE [Concomitant]
     Route: 049
  28. PREDNISOLONE [Concomitant]
     Route: 049

REACTIONS (7)
  - CHILLS [None]
  - EXANTHEM [None]
  - HOT FLUSH [None]
  - INFUSION RELATED REACTION [None]
  - PYREXIA [None]
  - RHEUMATOID ARTHRITIS [None]
  - RHEUMATOID NODULE [None]
